FAERS Safety Report 7940363-3 (Version None)
Quarter: 2011Q4

REPORT INFORMATION
  Report Type: 
  Country: None (occurrence: None)
  Receive Date: 20111127
  Receipt Date: 20111115
  Transmission Date: 20120403
  Serious: Yes (Hospitalization)
  Sender: FDA-Public Use
  Company Number: US-ELI_LILLY_AND_COMPANY-US201107006222

PATIENT
  Age: 60 Year
  Sex: Female

DRUGS (3)
  1. FORTEO [Suspect]
     Dosage: 20 UG, QD
  2. FORTEO [Suspect]
     Indication: OSTEOPOROSIS
     Dosage: 20 UG, QD
     Dates: start: 20110613
  3. FORTEO [Suspect]
     Dosage: 20 UG, QD

REACTIONS (5)
  - MALAISE [None]
  - PAIN [None]
  - DRUG DOSE OMISSION [None]
  - HOSPITALISATION [None]
  - MEDICATION ERROR [None]
